FAERS Safety Report 23267116 (Version 1)
Quarter: 2023Q4

REPORT INFORMATION
  Report Type: Spontaneous
  Country: CN (occurrence: CN)
  Receive Date: 20231206
  Receipt Date: 20231206
  Transmission Date: 20240109
  Serious: Yes (Other)
  Sender: FDA-Public Use
  Company Number: CN-PFIZER INC-PV202300196184

PATIENT
  Age: 12 Year
  Sex: Female

DRUGS (4)
  1. CYTARABINE [Suspect]
     Active Substance: CYTARABINE
     Indication: Chemotherapy
     Dosage: 0.03 G, 1X/DAY
     Route: 037
     Dates: start: 20231101, end: 20231102
  2. CYTARABINE [Suspect]
     Active Substance: CYTARABINE
     Indication: Neoplasm
  3. METHOTREXATE [Suspect]
     Active Substance: METHOTREXATE
     Indication: Neoplasm
     Dosage: 12 MG, 1X/DAY
     Route: 037
     Dates: start: 20231101, end: 20231102
  4. METHOTREXATE [Suspect]
     Active Substance: METHOTREXATE
     Indication: Chemotherapy

REACTIONS (2)
  - Cardiac failure [Recovered/Resolved]
  - Hypotension [Unknown]

NARRATIVE: CASE EVENT DATE: 20231101
